FAERS Safety Report 4598304-5 (Version None)
Quarter: 2005Q2

REPORT INFORMATION
  Report Type: 
  Country: None (occurrence: None)
  Receive Date: 20050204
  Receipt Date: 20040610
  Transmission Date: 20051028
  Serious: Yes (Hospitalization)
  Sender: FDA-Public Use
  Company Number: PHEH2004US06394

PATIENT
  Age: 55 Year
  Sex: Female

DRUGS (2)
  1. CLOZARIL [Suspect]
     Indication: SCHIZOPHRENIA
     Dosage: ORAL
     Route: 048
  2. GEODON [Suspect]
     Dosage: ORAL
     Route: 048
     Dates: start: 20040201

REACTIONS (1)
  - DISORIENTATION [None]
